FAERS Safety Report 5898858-2 (Version None)
Quarter: 2008Q3

REPORT INFORMATION
  Report Type: 
  Country: None (occurrence: None)
  Receive Date: 20080925
  Receipt Date: 20080924
  Transmission Date: 20090109
  Serious: Yes (Disabling)
  Sender: FDA-Public Use
  Company Number: US-BRISTOL-MYERS SQUIBB COMPANY-14346191

PATIENT
  Age: 62 Year
  Sex: Female

DRUGS (12)
  1. ORENCIA [Suspect]
     Indication: RHEUMATOID ARTHRITIS
     Dosage: LAST AND FIFTH INFUSION ON 28AUG08
     Dates: start: 20080508, end: 20080828
  2. PREDNISONE [Concomitant]
  3. VITAMIN D [Concomitant]
  4. PREMARIN [Concomitant]
     Dosage: 1 DOSAGEFORM = 0.625 (UNITS NOT MENTIONED)
  5. TRIAMTERENE AND HYDROCHLOROTHIAZIDE [Concomitant]
     Dosage: 1 DOSAGEFORM = 57.5/25 (UNITS NOT MENTIONED)
  6. SYNTHROID [Concomitant]
  7. LESCOL [Concomitant]
     Dosage: 40 MG AM
  8. LEXAPRO [Concomitant]
  9. ACTONEL [Concomitant]
  10. CALCIUM + VITAMIN D [Concomitant]
  11. ADVIL [Concomitant]
  12. TUMS [Concomitant]

REACTIONS (1)
  - PSORIASIS [None]
